FAERS Safety Report 8386856-9 (Version None)
Quarter: 2012Q2

REPORT INFORMATION
  Report Type: 
  Country: None (occurrence: None)
  Receive Date: 20120525
  Receipt Date: 20120523
  Transmission Date: 20120825
  Serious: Yes (Death, Life-Threatening, Hospitalization)
  Sender: FDA-Public Use
  Company Number: BR-B.I. PHARMACEUTICALS,INC./RIDGEFIELD-2012-BR-00551BR

PATIENT
  Age: 79 Year
  Sex: Male

DRUGS (6)
  1. FORMOTEROL FUMARATE [Concomitant]
     Indication: LUNG DISORDER
  2. SPIRIVA RESPIMAT [Suspect]
     Indication: EMPHYSEMA
     Route: 055
     Dates: start: 20100101, end: 20120423
  3. AAS INFANTIL [Concomitant]
  4. SUSTRATE [Concomitant]
     Indication: CARDIAC DISORDER
  5. CARDIZEM [Suspect]
     Dosage: 120 MG
     Route: 048
     Dates: start: 20120301, end: 20120423
  6. DIURETIC [Concomitant]
     Indication: HYPERTENSION

REACTIONS (7)
  - MULTI-ORGAN FAILURE [None]
  - COMA [None]
  - THROMBOSIS [None]
  - EMPHYSEMA [None]
  - PNEUMONIA [None]
  - DIABETES MELLITUS [None]
  - DYSPNOEA [None]
